FAERS Safety Report 7584905-9 (Version None)
Quarter: 2011Q2

REPORT INFORMATION
  Report Type: 
  Country: None (occurrence: None)
  Receive Date: 20110630
  Receipt Date: 20110622
  Transmission Date: 20111010
  Serious: Yes (Other)
  Sender: FDA-Public Use
  Company Number: JP-GENENTECH-320840

PATIENT
  Age: 45 Year
  Sex: Male

DRUGS (2)
  1. ANTIHYPERTENSIVE [Concomitant]
     Indication: PRODUCT USED FOR UNKNOWN INDICATION
  2. ACTIVASE [Suspect]
     Indication: CEREBRAL INFARCTION
     Dosage: 0.6 MG/KG, UNK

REACTIONS (1)
  - ARTERY DISSECTION [None]
